FAERS Safety Report 5235855-4 (Version None)
Quarter: 2007Q1

REPORT INFORMATION
  Report Type: 
  Country: None (occurrence: None)
  Receive Date: 20061208
  Receipt Date: 20060509
  Transmission Date: 20070707
  Serious: Yes (Other)
  Sender: FDA-Public Use
  Company Number: 2006UW09144

PATIENT
  Age: 85 Year
  Sex: Male
  Weight: 88.45 kg

DRUGS (4)
  1. CRESTOR [Suspect]
     Indication: BLOOD CHOLESTEROL INCREASED
     Dosage: 10 MG PO
     Route: 048
     Dates: start: 20040101
  2. BETAPACE [Concomitant]
  3. PREVACID [Concomitant]
  4. VITAMINS [Concomitant]

REACTIONS (4)
  - BACK PAIN [None]
  - DRY MOUTH [None]
  - MYALGIA [None]
  - RENAL PAIN [None]
